FAERS Safety Report 9363264 (Version 4)
Quarter: 2013Q3

REPORT INFORMATION
  Report Type: Spontaneous
  Country: US (occurrence: US)
  Receive Date: 20130624
  Receipt Date: 20130920
  Transmission Date: 20140515
  Serious: Yes (Hospitalization)
  Sender: FDA-Public Use
  Company Number: US-BIOGENIDEC-2013BI055015

PATIENT
  Age: 38 Year
  Sex: Female

DRUGS (2)
  1. TYSABRI [Suspect]
     Indication: MULTIPLE SCLEROSIS
     Route: 042
     Dates: start: 20100701
  2. MORPHINE SULFATE [Concomitant]
     Indication: INTERVERTEBRAL DISC DEGENERATION

REACTIONS (3)
  - Multiple sclerosis relapse [Recovered/Resolved]
  - Anxiety [Unknown]
  - Memory impairment [Unknown]
